FAERS Safety Report 4658832-0 (Version None)
Quarter: 2005Q2

REPORT INFORMATION
  Report Type: 
  Country: None (occurrence: None)
  Receive Date: 20050511
  Receipt Date: 20050502
  Transmission Date: 20051028
  Serious: Yes (Other)
  Sender: FDA-Public Use
  Company Number: US-ROCHE-403759

PATIENT
  Age: 69 Year
  Sex: Female
  Weight: 71.7 kg

DRUGS (8)
  1. PEGASYS [Suspect]
     Indication: HEPATITIS C
     Route: 065
     Dates: start: 20040709, end: 20050215
  2. COPEGUS [Suspect]
     Indication: HEPATITIS C
     Dosage: DOSAGES REPORTED 400/600.
     Route: 065
     Dates: start: 20040709, end: 20050215
  3. NEUPOGEN [Concomitant]
  4. CELEXA [Concomitant]
  5. HYDROXYZINE [Concomitant]
  6. PROCRIT [Concomitant]
  7. ULTRAM [Concomitant]
  8. PHENERGAN [Concomitant]

REACTIONS (2)
  - MASS [None]
  - PAIN IN EXTREMITY [None]
